FAERS Safety Report 16733306 (Version 1)
Quarter: 2019Q3

REPORT INFORMATION
  Report Type: Spontaneous
  Country: US (occurrence: US)
  Receive Date: 20190823
  Receipt Date: 20190823
  Transmission Date: 20191005
  Serious: No
  Sender: FDA-Public Use
  Company Number: US-TEVA-2019-US-1097863

PATIENT
  Sex: Female

DRUGS (1)
  1. ESTRADIOL VAGINAL INSERTS [Suspect]
     Active Substance: ESTRADIOL
     Dosage: 10 MCG
     Route: 067

REACTIONS (2)
  - Device malfunction [Unknown]
  - Vulvovaginal discomfort [Unknown]
